FAERS Safety Report 23255492 (Version 2)
Quarter: 2024Q1

REPORT INFORMATION
  Report Type: Spontaneous
  Country: BR (occurrence: BR)
  Receive Date: 20231203
  Receipt Date: 20240314
  Transmission Date: 20240410
  Serious: Yes (Other)
  Sender: FDA-Public Use
  Company Number: BR-002147023-NVSC2023BR253098

PATIENT
  Sex: Female

DRUGS (1)
  1. COSENTYX [Suspect]
     Active Substance: SECUKINUMAB
     Indication: Ankylosing spondylitis
     Dosage: UNK UNK, QMO
     Route: 065

REACTIONS (10)
  - Endocarditis [Unknown]
  - Autoimmune disorder [Unknown]
  - Blister [Not Recovered/Not Resolved]
  - Syringe issue [Unknown]
  - Product dose omission issue [Unknown]
  - Device leakage [Unknown]
  - Skin disorder [Unknown]
  - Product supply issue [Unknown]
  - Disease progression [Unknown]
  - Needle issue [Unknown]
